FAERS Safety Report 7351786-8 (Version None)
Quarter: 2011Q1

REPORT INFORMATION
  Report Type: 
  Country: None (occurrence: None)
  Receive Date: 20110315
  Receipt Date: 20100923
  Transmission Date: 20110831
  Serious: Yes (Hospitalization)
  Sender: FDA-Public Use
  Company Number: US-BAYER-201012726NA

PATIENT
  Sex: Female
  Weight: 56.689 kg

DRUGS (13)
  1. CLARINEX [Concomitant]
     Dosage: UNK
     Route: 048
     Dates: start: 20071206
  2. FLUCONAZOLE [Concomitant]
     Indication: FUNGAL INFECTION
     Dosage: 150 MG, UNK
     Route: 048
     Dates: start: 20080630
  3. IBUPROFEN [Concomitant]
     Dosage: 600 MG, QID
     Route: 048
     Dates: start: 20080724
  4. CLARITIN [Concomitant]
  5. YAZ [Suspect]
     Indication: CONTRACEPTION
     Dosage: UNK UNK, QD
     Route: 048
     Dates: start: 20050101, end: 20080601
  6. ADVIL LIQUI-GELS [Concomitant]
     Dosage: UNK
     Dates: start: 20000101, end: 20100101
  7. SINGULAIR [Concomitant]
     Dosage: 10 MG, UNK
     Route: 048
     Dates: start: 20071206
  8. ALLEGRA-D [FEXOFENADINE HYDROCHLORIDE,PSEUDOEPHEDRINE HYDROCHLORIDE] [Concomitant]
     Dosage: UNK
     Route: 048
     Dates: start: 20080102
  9. METHYLPREDNISOLONE [Concomitant]
     Dosage: 4 MG, UNK
     Route: 048
     Dates: start: 20080122
  10. YAZ [Suspect]
     Indication: PREMENSTRUAL SYNDROME
  11. ALPRAZOLAM [Concomitant]
  12. HYDROCODONE BITARTRATE AND ACETAMINOPHEN [Concomitant]
     Dosage: UNK
     Route: 048
     Dates: start: 20080724
  13. PENICILLIN VK [Concomitant]
     Dosage: 500 MG, QID
     Route: 048
     Dates: start: 20080724

REACTIONS (6)
  - CHOLELITHIASIS [None]
  - EPIGASTRIC DISCOMFORT [None]
  - NAUSEA [None]
  - WEIGHT DECREASED [None]
  - ANXIETY [None]
  - ABDOMINAL DISCOMFORT [None]
